FAERS Safety Report 23886994 (Version 1)
Quarter: 2024Q2

REPORT INFORMATION
  Report Type: Spontaneous
  Country: FR (occurrence: FR)
  Receive Date: 20240523
  Receipt Date: 20240523
  Transmission Date: 20240716
  Serious: Yes (Other)
  Sender: FDA-Public Use
  Company Number: FR-NOVOPROD-1223118

PATIENT
  Age: 16 Year
  Sex: Male

DRUGS (1)
  1. GLUCAGEN [Suspect]
     Active Substance: GLUCAGON HYDROCHLORIDE
     Indication: Suicide attempt
     Dosage: UNK

REACTIONS (2)
  - Suicide attempt [Unknown]
  - Somnolence [Unknown]
